FAERS Safety Report 7352142-9 (Version None)
Quarter: 2011Q1

REPORT INFORMATION
  Report Type: 
  Country: None (occurrence: None)
  Receive Date: 20110315
  Receipt Date: 20110301
  Transmission Date: 20110831
  Serious: Yes (Hospitalization, Other)
  Sender: FDA-Public Use
  Company Number: IT-BAYER-2010-001471

PATIENT
  Sex: Male

DRUGS (5)
  1. ENTECAVIR [Concomitant]
     Dosage: DAILY DOSE .5 MG
  2. NEXAVAR [Suspect]
     Indication: HEPATIC NEOPLASM MALIGNANT NON-RESECTABLE
     Dosage: 800 MG, QD
     Route: 048
     Dates: start: 20100818, end: 20100915
  3. NOROXIN [Concomitant]
     Dosage: DAILY DOSE 400 MG
  4. LACTULOSE [Concomitant]
     Route: 048
  5. LAMICTAL [Concomitant]
     Dosage: DAILY DOSE 300 MG

REACTIONS (4)
  - PYREXIA [None]
  - RENAL FAILURE ACUTE [None]
  - DIARRHOEA [None]
  - SEPSIS [None]
